FAERS Safety Report 12726757 (Version 1)
Quarter: 2016Q3

REPORT INFORMATION
  Report Type: Spontaneous
  Country: US (occurrence: US)
  Receive Date: 20160908
  Receipt Date: 20160908
  Transmission Date: 20161109
  Serious: Yes (Other)
  Sender: FDA-Public Use
  Company Number: PHEH2016US022504

PATIENT
  Age: 55 Year
  Sex: Female
  Weight: 63.5 kg

DRUGS (1)
  1. VIVELLE-DOT [Suspect]
     Active Substance: ESTRADIOL
     Indication: MENOPAUSE
     Dosage: 0.05 MG, (TWICE A WEEK)
     Route: 062
     Dates: start: 20160803, end: 20160830

REACTIONS (2)
  - Neuralgia [Unknown]
  - Menopause [Unknown]

NARRATIVE: CASE EVENT DATE: 20160831
